FAERS Safety Report 7111332-0 (Version None)
Quarter: 2010Q4

REPORT INFORMATION
  Report Type: 
  Country: None (occurrence: None)
  Receive Date: 20101105
  Receipt Date: 20101026
  Transmission Date: 20110411
  Serious: Yes (Life-Threatening, Other)
  Sender: FDA-Public Use
  Company Number: WAES 0807USA02395

PATIENT
  Age: 72 Year
  Sex: Female

DRUGS (6)
  1. HYZAAR [Suspect]
     Indication: HYPERTENSION
     Dosage: 1 DOSE DAILY; PO
     Route: 048
     Dates: start: 20071218
  2. TAB MEVALOTIN (PRAVASTATIN NA) [Suspect]
     Indication: DYSLIPIDAEMIA
     Dosage: 10 MG, DAILY, PO
     Route: 048
     Dates: start: 20010512
  3. NORVASC [Suspect]
     Indication: HYPERTENSION
     Dosage: 2.5 MG, DAILY, PO
     Route: 048
  4. TAB GLYCORAN (METFORMIN HCL) [Suspect]
     Indication: TYPE 2 DIABETES MELLITUS
     Dosage: 250 MG, TID, PO
     Route: 048
     Dates: start: 19990101
  5. SOLN LAXOBERON (SODIUM PICOSULFATE) [Suspect]
     Indication: CONSTIPATION
     Dates: start: 20010101
  6. TAB GLIMICRON (GLICLAZIDE) [Suspect]
     Indication: TYPE 2 DIABETES MELLITUS
     Dosage: 20 MG, DAILY, PO
     Route: 048
     Dates: start: 19990101

REACTIONS (2)
  - ANGINA UNSTABLE [None]
  - REFLUX OESOPHAGITIS [None]
